FAERS Safety Report 8234117-0 (Version None)
Quarter: 2012Q1

REPORT INFORMATION
  Report Type: 
  Country: None (occurrence: None)
  Receive Date: 20120326
  Receipt Date: 20120326
  Transmission Date: 20120608
  Serious: Yes (Hospitalization, Disabling, Other)
  Sender: FDA-Public Use
  Company Number: None

PATIENT
  Sex: Female
  Weight: 56.245 kg

DRUGS (2)
  1. AREDIA [Concomitant]
     Indication: BREAST CANCER
     Dosage: 90MG
     Route: 041
     Dates: start: 20050216, end: 20051217
  2. ZOMETA [Suspect]
     Indication: BREAST CANCER
     Dosage: 4MG
     Route: 041
     Dates: start: 20040512, end: 20050316

REACTIONS (1)
  - OSTEONECROSIS OF JAW [None]
